FAERS Safety Report 6804248-8 (Version None)
Quarter: 2010Q2

REPORT INFORMATION
  Report Type: 
  Country: None (occurrence: None)
  Receive Date: 20100628
  Receipt Date: 20070211
  Transmission Date: 20101027
  Serious: No
  Sender: FDA-Public Use
  Company Number: US-PFIZER INC-2007011969

PATIENT
  Sex: Male

DRUGS (5)
  1. SOMAVERT [Suspect]
     Indication: PITUITARY TUMOUR
     Dates: start: 20070101
  2. SANDOSTATIN [Concomitant]
  3. ZANTAC [Concomitant]
  4. CARBAMAZEPINE [Concomitant]
  5. ANTIHYPERTENSIVES [Concomitant]
     Indication: HYPERTENSION

REACTIONS (5)
  - DIARRHOEA [None]
  - DIZZINESS [None]
  - FALL [None]
  - REFLEXES ABNORMAL [None]
  - VOMITING [None]
